FAERS Safety Report 8005718-X (Version None)
Quarter: 2011Q4

REPORT INFORMATION
  Report Type: 
  Country: None (occurrence: None)
  Receive Date: 20111223
  Receipt Date: 20111220
  Transmission Date: 20120403
  Serious: Yes (Other)
  Sender: FDA-Public Use
  Company Number: GXKR2011DE003644

PATIENT

DRUGS (5)
  1. RAMIPRIL [Concomitant]
     Route: 048
  2. SULFASALAZINE [Concomitant]
     Route: 048
     Dates: start: 20090701, end: 20090801
  3. LEFLUNOMIDE [Suspect]
     Indication: PSORIATIC ARTHROPATHY
     Dosage: DAILY DOSE: 20 MG MILLGRAM(S) EVERY DAYS
     Route: 048
     Dates: start: 20110101, end: 20110801
  4. PREDNISOLONE [Concomitant]
     Indication: PSORIATIC ARTHROPATHY
     Route: 048
  5. METHOTREXATE [Concomitant]
     Dosage: DAILY DOSE: 20 MG MILLGRAM(S) EVERY WEEKS
     Route: 048
     Dates: start: 20090901, end: 20101101

REACTIONS (1)
  - POLYNEUROPATHY [None]
